FAERS Safety Report 20872152 (Version 13)
Quarter: 2024Q1

REPORT INFORMATION
  Report Type: Other
  Country: IN (occurrence: None)
  Receive Date: 20220525
  Receipt Date: 20240314
  Transmission Date: 20240409
  Serious: Yes (Hospitalization, Other)
  Sender: FDA-Public Use
  Company Number: IN-ROCHE-3099231

PATIENT
  Age: 70 Year
  Sex: Female
  Weight: 68 kg

DRUGS (1)
  1. KADCYLA [Suspect]
     Active Substance: ADO-TRASTUZUMAB EMTANSINE
     Indication: Breast cancer
     Route: 042

REACTIONS (10)
  - Pneumonia [Unknown]
  - Pulmonary hypertension [Recovered/Resolved]
  - Blindness unilateral [Recovered/Resolved]
  - Cataract operation [Recovered/Resolved]
  - COVID-19 [Recovered/Resolved]
  - Cardiac disorder [Recovered/Resolved]
  - Ocular hyperaemia [Recovered/Resolved]
  - Eye pain [Recovered/Resolved]
  - Pyrexia [Unknown]
  - Off label use [Unknown]
